FAERS Safety Report 16028302 (Version 1)
Quarter: 2019Q1

REPORT INFORMATION
  Report Type: Spontaneous
  Country: US (occurrence: US)
  Receive Date: 20190304
  Receipt Date: 20190304
  Transmission Date: 20190418
  Serious: Yes (Disabling)
  Sender: FDA-Public Use
  Company Number: US-TEVA-2019-US-1019586

PATIENT

DRUGS (2)
  1. DOCETAXEL. [Suspect]
     Active Substance: DOCETAXEL
     Route: 065
     Dates: start: 20150414, end: 20150616
  2. TAXOTERE [Suspect]
     Active Substance: DOCETAXEL
     Route: 065
     Dates: start: 20150414, end: 20150616

REACTIONS (4)
  - Alopecia [Unknown]
  - Alopecia [Not Recovered/Not Resolved]
  - Alopecia areata [Unknown]
  - Alopecia universalis [Not Recovered/Not Resolved]
